FAERS Safety Report 15524282 (Version 1)
Quarter: 2018Q4

REPORT INFORMATION
  Report Type: Report from Study
  Country: None (occurrence: US)
  Receive Date: 20181018
  Receipt Date: 20181018
  Transmission Date: 20190205
  Serious: Yes (Other)
  Sender: FDA-Public Use
  Company Number: US-ABBVIE-18K-163-2406062-00

PATIENT
  Age: 59 Year
  Sex: Female

DRUGS (9)
  1. CRANBERRY. [Concomitant]
     Active Substance: CRANBERRY
     Indication: PH URINE DECREASED
  2. HUMIRA [Suspect]
     Active Substance: ADALIMUMAB
     Route: 058
     Dates: start: 20180703
  3. METHENAMINE [Concomitant]
     Active Substance: METHENAMINE
     Indication: PH URINE DECREASED
  4. LEVOTHYROXINE. [Concomitant]
     Active Substance: LEVOTHYROXINE
     Indication: THYROID DISORDER
  5. LEVOTHYROXINE. [Concomitant]
     Active Substance: LEVOTHYROXINE
  6. MOTRIN [Concomitant]
     Active Substance: IBUPROFEN
     Indication: PAIN
  7. LOSARTAN. [Concomitant]
     Active Substance: LOSARTAN
     Indication: HYPERTENSION
  8. HUMIRA [Suspect]
     Active Substance: ADALIMUMAB
     Indication: PSORIATIC ARTHROPATHY
     Route: 058
     Dates: start: 2017, end: 201806
  9. VITAMIN C [Concomitant]
     Active Substance: ASCORBIC ACID
     Indication: PH URINE DECREASED

REACTIONS (7)
  - Unevaluable event [Unknown]
  - Immunodeficiency [Not Recovered/Not Resolved]
  - Pain [Recovered/Resolved]
  - Urinary incontinence [Recovering/Resolving]
  - Hysterectomy [Recovered/Resolved]
  - Lower respiratory tract infection [Recovered/Resolved]
  - Urinary tract infection [Recovered/Resolved]

NARRATIVE: CASE EVENT DATE: 201806
